FAERS Safety Report 12170858 (Version 7)
Quarter: 2016Q3

REPORT INFORMATION
  Report Type: Spontaneous
  Country: IT (occurrence: IT)
  Receive Date: 20160311
  Receipt Date: 20160705
  Transmission Date: 20161109
  Serious: Yes (Other)
  Sender: FDA-Public Use
  Company Number: IT-ROCHE-1721704

PATIENT
  Age: 67 Year
  Sex: Female
  Weight: 68 kg

DRUGS (4)
  1. OXALIPLATIN. [Suspect]
     Active Substance: OXALIPLATIN
     Dosage: 5 MG/ML-5 GLASS VIALS CONTAINING 200 MG/40 ML
     Route: 042
     Dates: end: 201605
  2. XELODA [Suspect]
     Active Substance: CAPECITABINE
     Indication: COLON CANCER
     Dosage: 500 MG 120 FILM-COATED TABLETS IN BLISTER PACK.?FILM-COATED TABLETS
     Route: 048
     Dates: start: 20160119, end: 20160301
  3. XELODA [Suspect]
     Active Substance: CAPECITABINE
     Dosage: 500 MG 120 FILM-COATED TABLETS IN BLISTER PACK.?FILM-COATED TABLETS
     Route: 048
     Dates: end: 201605
  4. OXALIPLATIN. [Suspect]
     Active Substance: OXALIPLATIN
     Indication: COLON CANCER
     Dosage: 5 MG/ML-5 GLASS VIALS CONTAINING 200 MG/40 ML
     Route: 042
     Dates: start: 20160119, end: 20160301

REACTIONS (8)
  - Vertigo [Recovered/Resolved]
  - Diarrhoea [Recovered/Resolved]
  - Nausea [Recovered/Resolved]
  - Palmar-plantar erythrodysaesthesia syndrome [Unknown]
  - Joint stiffness [Recovered/Resolved]
  - Stomatitis [Recovered/Resolved]
  - Paraesthesia [Unknown]
  - Paraesthesia [Unknown]

NARRATIVE: CASE EVENT DATE: 20160222
